FAERS Safety Report 7298828-6 (Version None)
Quarter: 2011Q1

REPORT INFORMATION
  Report Type: 
  Country: None (occurrence: None)
  Receive Date: 20110217
  Receipt Date: 20110207
  Transmission Date: 20110831
  Serious: Yes (Other)
  Sender: FDA-Public Use
  Company Number: VE-ROCHE-758020

PATIENT
  Sex: Female
  Weight: 88.9 kg

DRUGS (2)
  1. HERCEPTIN [Suspect]
     Indication: BREAST CANCER
     Route: 042
     Dates: start: 20110201
  2. PACLITAXEL [Concomitant]
     Indication: BREAST CANCER
     Route: 042
     Dates: start: 20110201

REACTIONS (8)
  - FLUSHING [None]
  - VISUAL FIELD DEFECT [None]
  - CHILLS [None]
  - LIMB DISCOMFORT [None]
  - PAIN OF SKIN [None]
  - HEADACHE [None]
  - ASPHYXIA [None]
  - SKIN WARM [None]
